FAERS Safety Report 5446331-8 (Version None)
Quarter: 2007Q3

REPORT INFORMATION
  Report Type: 
  Country: None (occurrence: None)
  Receive Date: 20070907
  Receipt Date: 20070829
  Transmission Date: 20080115
  Serious: Yes (Death)
  Sender: FDA-Public Use
  Company Number: JP-ROCHE-511394

PATIENT
  Age: 52 Year
  Sex: Female

DRUGS (5)
  1. XELODA [Suspect]
     Indication: BREAST CANCER METASTATIC
     Dosage: 3 WEEKS FOLLOWED BY 1 WEEK REST
     Route: 048
     Dates: start: 20070508, end: 20070528
  2. XELODA [Suspect]
     Route: 048
     Dates: start: 20070612, end: 20070710
  3. NAVELBINE [Suspect]
     Indication: BREAST CANCER METASTATIC
     Dosage: GENERIC NAME REPORTED AS VINORELBINE DITARTRATE.
     Route: 041
     Dates: start: 20070612, end: 20070703
  4. ZOMETA [Concomitant]
     Route: 041
  5. ARIMIDEX [Concomitant]
     Route: 048

REACTIONS (4)
  - EYE PAIN [None]
  - HEADACHE [None]
  - PYREXIA [None]
  - RENAL FAILURE ACUTE [None]
